FAERS Safety Report 9509558 (Version 1)
Quarter: 2013Q3

REPORT INFORMATION
  Report Type: Spontaneous
  Country: US (occurrence: US)
  Receive Date: 20130909
  Receipt Date: 20130909
  Transmission Date: 20140515
  Serious: No
  Sender: FDA-Public Use
  Company Number: US-BRISTOL-MYERS SQUIBB COMPANY-17231416

PATIENT
  Age: 11 Year
  Sex: Male

DRUGS (4)
  1. ABILIFY [Suspect]
     Indication: AFFECTIVE DISORDER
     Dosage: DOSE:10MG TO 15MG.
  2. ABILIFY [Suspect]
     Indication: OPPOSITIONAL DEFIANT DISORDER
     Dosage: DOSE:10MG TO 15MG.
  3. LEXAPRO [Concomitant]
  4. CONCERTA [Concomitant]

REACTIONS (1)
  - Tooth loss [Not Recovered/Not Resolved]
